FAERS Safety Report 6761837-7 (Version None)
Quarter: 2010Q2

REPORT INFORMATION
  Report Type: 
  Country: None (occurrence: None)
  Receive Date: 20100429
  Receipt Date: 20100416
  Transmission Date: 20101027
  Serious: No
  Sender: FDA-Public Use
  Company Number: US-144958

PATIENT
  Sex: Female
  Weight: 136.0791 kg

DRUGS (2)
  1. WINRHO SDF LIQUID [Suspect]
     Indication: IDIOPATHIC THROMBOCYTOPENIC PURPURA
     Dosage: INTRAVENOUS, INTRAVENOUS
     Route: 042
     Dates: start: 20100201, end: 20100201
  2. WINRHO SDF LIQUID [Suspect]
     Indication: IDIOPATHIC THROMBOCYTOPENIC PURPURA
     Dosage: INTRAVENOUS, INTRAVENOUS
     Route: 042
     Dates: start: 20100301, end: 20100301

REACTIONS (2)
  - DYSPNOEA [None]
  - HAEMOLYTIC ANAEMIA [None]
